FAERS Safety Report 24244176 (Version 2)
Quarter: 2024Q3

REPORT INFORMATION
  Report Type: Spontaneous
  Country: US (occurrence: US)
  Receive Date: 20240823
  Receipt Date: 20240910
  Transmission Date: 20241016
  Serious: Yes (Death, Hospitalization)
  Sender: PFIZER
  Company Number: US-PFIZER INC-PV202400081996

PATIENT
  Age: 79 Year
  Sex: Female

DRUGS (1)
  1. TUKYSA [Suspect]
     Active Substance: TUCATINIB
     Dosage: 150MG; 2 TABLETS, TWICE A DAY
     Route: 048
     Dates: start: 202407, end: 202407

REACTIONS (1)
  - Death [Fatal]

NARRATIVE: CASE EVENT DATE: 20240727
